FAERS Safety Report 5336227-4 (Version None)
Quarter: 2007Q2

REPORT INFORMATION
  Report Type: 
  Country: None (occurrence: None)
  Receive Date: 20070315
  Receipt Date: 20070129
  Transmission Date: 20071010
  Serious: No
  Sender: FDA-Public Use
  Company Number: BDI-009077

PATIENT
  Age: 45 Year
  Sex: Male

DRUGS (2)
  1. MULTIHANCE [Suspect]
     Indication: NUCLEAR MAGNETIC RESONANCE IMAGING
     Dosage: 50 ML ONCE IV
     Route: 042
     Dates: start: 20070123, end: 20070123
  2. SODIUM CHLORIDE 0.9% [Concomitant]

REACTIONS (1)
  - VOMITING [None]
